FAERS Safety Report 5292370-X (Version None)
Quarter: 2007Q2

REPORT INFORMATION
  Report Type: 
  Country: None (occurrence: None)
  Receive Date: 20070410
  Receipt Date: 20070327
  Transmission Date: 20071010
  Serious: Yes (Hospitalization)
  Sender: FDA-Public Use
  Company Number: AT-BOEHRINGER INGELHEIM GMBH, GERMANY-2007-BE-00026BE

PATIENT
  Sex: Male
  Weight: 66 kg

DRUGS (4)
  1. TIPRANAVIR + RITONAVIR CO-ADMIN [Suspect]
     Indication: HIV INFECTION
     Dosage: TPV/RTV: 1000/400 MG
     Route: 048
     Dates: start: 20061201
  2. COMBIVIR [Concomitant]
     Indication: HIV INFECTION
     Route: 048
     Dates: start: 20061201
  3. FUZEON [Concomitant]
     Indication: HIV INFECTION
     Dosage: 90 MG/ML
     Route: 058
     Dates: start: 20061001
  4. CAELYX [Concomitant]
     Indication: KAPOSI'S SARCOMA
     Route: 042
     Dates: start: 20070101, end: 20070301

REACTIONS (4)
  - ACUTE ABDOMEN [None]
  - CYTOMEGALOVIRUS TEST [None]
  - INTESTINAL PERFORATION [None]
  - KAPOSI'S SARCOMA [None]
